FAERS Safety Report 7937969-4 (Version None)
Quarter: 2011Q4

REPORT INFORMATION
  Report Type: 
  Country: None (occurrence: None)
  Receive Date: 20111123
  Receipt Date: 20111115
  Transmission Date: 20120403
  Serious: Yes (Other)
  Sender: FDA-Public Use
  Company Number: FR-GENZYME-THYM-1002842

PATIENT
  Sex: Male

DRUGS (5)
  1. CYCLOSPORINE [Concomitant]
     Indication: PROPHYLAXIS AGAINST GRAFT VERSUS HOST DISEASE
     Dosage: 200 MG, UNK
     Route: 042
     Dates: start: 20110913
  2. MYCOPHENOLATE MOFETIL (CELLCEPT) [Concomitant]
     Indication: PROPHYLAXIS AGAINST GRAFT VERSUS HOST DISEASE
     Dosage: 1500 MG, UNK
     Route: 065
     Dates: start: 20110917
  3. MEYCON EN [Concomitant]
     Indication: PYREXIA
     Dosage: 3 G, UNK
     Route: 065
     Dates: start: 20110930
  4. THYMOGLOBULIN [Suspect]
     Indication: ACUTE GRAFT VERSUS HOST DISEASE
     Dosage: 225 MG, QD
     Route: 042
     Dates: start: 20110929, end: 20111002
  5. SOLU-MEDROL [Concomitant]
     Indication: ACUTE GRAFT VERSUS HOST DISEASE
     Dosage: 90 MG, UNK
     Route: 065
     Dates: start: 20110926

REACTIONS (1)
  - ARTHRITIS [None]
